FAERS Safety Report 4602938-9 (Version None)
Quarter: 2005Q1

REPORT INFORMATION
  Report Type: 
  Country: None (occurrence: None)
  Receive Date: 20050307
  Receipt Date: 20050209
  Transmission Date: 20050727
  Serious: Yes (Death)
  Sender: FDA-Public Use
  Company Number: 10256

PATIENT
  Age: 69 Year
  Sex: Male

DRUGS (7)
  1. METHOTREXATE [Suspect]
     Indication: LYMPHOMA
     Dosage: 5 G
     Route: 042
     Dates: start: 20050131, end: 20050131
  2. SULBACTAM SODIUM [Concomitant]
  3. CIPROFLOXACIN HYDROCHLORIDE [Concomitant]
  4. CLINDAMYCIN PHOSPHATE [Concomitant]
  5. CILASTATIN W IMIPENEM [Concomitant]
  6. IMMUNE GLOBULIN INTRAVENOUS (HUMAN) [Concomitant]
  7. SIVELESTAT SODIUM HYDRATE [Concomitant]

REACTIONS (5)
  - ACUTE RESPIRATORY DISTRESS SYNDROME [None]
  - BONE MARROW DEPRESSION [None]
  - DRUG CLEARANCE DECREASED [None]
  - HAEMODIALYSIS [None]
  - RENAL FAILURE ACUTE [None]
